FAERS Safety Report 9201686 (Version 1)
Quarter: 2013Q2

REPORT INFORMATION
  Report Type: Spontaneous
  Country: US (occurrence: US)
  Receive Date: 20130401
  Receipt Date: 20130401
  Transmission Date: 20140414
  Serious: No
  Sender: FDA-Public Use
  Company Number: US-PFIZER INC-2013099336

PATIENT
  Sex: Male

DRUGS (2)
  1. VIAGRA [Suspect]
     Dosage: 50 MG, UNK
     Route: 048
  2. VIAGRA [Suspect]
     Dosage: 100 MG, UNK
     Route: 048

REACTIONS (1)
  - Dizziness [Recovered/Resolved]
